FAERS Safety Report 14962150 (Version 1)
Quarter: 2018Q2

REPORT INFORMATION
  Report Type: Other
  Country: FR (occurrence: FR)
  Receive Date: 20180601
  Receipt Date: 20180601
  Transmission Date: 20180711
  Serious: Yes (Hospitalization)
  Sender: FDA-Public Use
  Company Number: FR-MERCK KGAA-2048846

PATIENT
  Age: 26 Year
  Sex: Male

DRUGS (16)
  1. LIOTHYRONINE [Suspect]
     Active Substance: LIOTHYRONINE
  2. TESTOSTERONE CYPIONATE. [Suspect]
     Active Substance: TESTOSTERONE CYPIONATE
  3. SPIRONOLACTONE. [Suspect]
     Active Substance: SPIRONOLACTONE
  4. MULTIVITAMINS [Suspect]
     Active Substance: VITAMINS
  5. FLUOXYMESTERONE [Suspect]
     Active Substance: FLUOXYMESTERONE
  6. TESTOSTERONE ENANTHATE. [Suspect]
     Active Substance: TESTOSTERONE ENANTHATE
  7. STANOZOLOL [Suspect]
     Active Substance: STANOZOLOL
  8. SUSTANON [Suspect]
     Active Substance: TESTOSTERONE
  9. MESTEROLONE [Suspect]
     Active Substance: MESTEROLONE
  10. CABERGOLINE. [Suspect]
     Active Substance: CABERGOLINE
  11. TRENBOLONE [Suspect]
     Active Substance: TRENBOLONE
  12. NOVOTHYROX [Suspect]
     Active Substance: LEVOTHYROXINE SODIUM
     Indication: PRODUCT USED FOR UNKNOWN INDICATION
  13. DROSTANOLONE PROPIONATE [Suspect]
     Active Substance: DROMOSTANOLONE PROPIONATE
  14. CLENBUTEROL [Suspect]
     Active Substance: CLENBUTEROL
  15. ANASTROZOLE. [Suspect]
     Active Substance: ANASTROZOLE
     Route: 048
  16. ALTIZIDE [Suspect]
     Active Substance: ALTHIAZIDE

REACTIONS (7)
  - Off label use [Unknown]
  - Diabetes mellitus [Unknown]
  - Haematocrit increased [Unknown]
  - Secondary hypogonadism [Unknown]
  - Product use issue [Unknown]
  - Autoimmune thyroiditis [Unknown]
  - Product use in unapproved indication [Unknown]
